FAERS Safety Report 6079304-5 (Version None)
Quarter: 2009Q1

REPORT INFORMATION
  Report Type: 
  Country: None (occurrence: None)
  Receive Date: 20090216
  Receipt Date: 20090210
  Transmission Date: 20090719
  Serious: Yes (Disabling)
  Sender: FDA-Public Use
  Company Number: EG-MERCK-0902USA01730

PATIENT
  Age: 50 Year
  Sex: Female

DRUGS (2)
  1. FOSAMAX [Suspect]
     Indication: OSTEOPOROSIS
     Route: 048
     Dates: start: 20030101, end: 20050101
  2. FOSAMAX [Suspect]
     Route: 048
     Dates: start: 20050101, end: 20070101

REACTIONS (1)
  - TOOTH LOSS [None]
